FAERS Safety Report 23051913 (Version 1)
Quarter: 2023Q4

REPORT INFORMATION
  Report Type: Spontaneous
  Country: US (occurrence: US)
  Receive Date: 20231010
  Receipt Date: 20231010
  Transmission Date: 20240110
  Serious: No
  Sender: FDA-Public Use
  Company Number: US-BAUSCH-BL-2023-014692

PATIENT
  Sex: Female

DRUGS (1)
  1. FLUOROURACIL [Suspect]
     Active Substance: FLUOROURACIL
     Indication: Precancerous condition
     Route: 061

REACTIONS (5)
  - Hypersensitivity [Unknown]
  - Tongue discolouration [Unknown]
  - Headache [Unknown]
  - Back pain [Unknown]
  - Abdominal pain upper [Unknown]
